FAERS Safety Report 20833476 (Version 1)
Quarter: 2022Q2

REPORT INFORMATION
  Report Type: Spontaneous
  Country: US (occurrence: US)
  Receive Date: 20220516
  Receipt Date: 20220516
  Transmission Date: 20220721
  Serious: Yes (Hospitalization, Other)
  Sender: FDA-Public Use
  Company Number: US-AMGEN-USASP2022080089

PATIENT
  Sex: Male

DRUGS (1)
  1. AVSOLA [Suspect]
     Active Substance: INFLIXIMAB-AXXQ
     Indication: Gastrointestinal disorder
     Dosage: 5 MILLIGRAM
     Route: 065

REACTIONS (2)
  - Intestinal obstruction [Unknown]
  - Drug effect less than expected [Unknown]
